FAERS Safety Report 4424269-2 (Version None)
Quarter: 2004Q3

REPORT INFORMATION
  Report Type: 
  Country: None (occurrence: None)
  Receive Date: 20040809
  Receipt Date: 20040726
  Transmission Date: 20050211
  Serious: Yes (Other)
  Sender: FDA-Public Use
  Company Number: 2004051194

PATIENT
  Age: 68 Year
  Sex: Female
  Weight: 112.9457 kg

DRUGS (1)
  1. NEURONTIN [Suspect]
     Indication: BACK PAIN
     Dosage: 2400 MG (1 D), ORAL
     Route: 048
     Dates: end: 20040724

REACTIONS (3)
  - CHEST PAIN [None]
  - DIZZINESS [None]
  - VISUAL ACUITY REDUCED [None]
